FAERS Safety Report 15248928 (Version 3)
Quarter: 2021Q3

REPORT INFORMATION
  Report Type: Spontaneous
  Country: US (occurrence: US)
  Receive Date: 20180807
  Receipt Date: 20210903
  Transmission Date: 20211014
  Serious: No
  Sender: FDA-Public Use
  Company Number: US-PFIZER INC-2018314122

PATIENT
  Age: 48 Year
  Sex: Male

DRUGS (2)
  1. SOMAVERT [Suspect]
     Active Substance: PEGVISOMANT
     Dosage: 10 MG, 1X/DAY
     Route: 058
     Dates: start: 20210403
  2. SOMAVERT [Suspect]
     Active Substance: PEGVISOMANT
     Indication: ACROMEGALY
     Dosage: 30 MG, DAILY
     Dates: start: 20151010

REACTIONS (6)
  - Blood glucose increased [Unknown]
  - Sex hormone binding globulin decreased [Unknown]
  - Blood testosterone free decreased [Unknown]
  - Blood testosterone decreased [Unknown]
  - Bone density increased [Unknown]
  - Insulin-like growth factor increased [Unknown]
